FAERS Safety Report 23138137 (Version 1)
Quarter: 2023Q4

REPORT INFORMATION
  Report Type: Spontaneous
  Country: RU (occurrence: None)
  Receive Date: 20231102
  Receipt Date: 20231102
  Transmission Date: 20240109
  Serious: Yes (Other)
  Sender: FDA-Public Use
  Company Number: RU-ROCHE-3447153

PATIENT
  Age: 60 Year
  Sex: Female

DRUGS (1)
  1. ATEZOLIZUMAB [Suspect]
     Active Substance: ATEZOLIZUMAB
     Indication: Lung neoplasm malignant
     Route: 065
     Dates: start: 202002

REACTIONS (3)
  - Metastases to adrenals [Unknown]
  - Pneumonia [Unknown]
  - Coronavirus infection [Unknown]
